FAERS Safety Report 5732866-7 (Version None)
Quarter: 2008Q2

REPORT INFORMATION
  Report Type: 
  Country: None (occurrence: None)
  Receive Date: 20080507
  Receipt Date: 20080507
  Transmission Date: 20081010
  Serious: Yes (Death)
  Sender: FDA-Public Use
  Company Number: None

PATIENT
  Age: 72 Year
  Sex: Male
  Weight: 117.9352 kg

DRUGS (1)
  1. DIGITEK  0.125MG  MYLAN [Suspect]
     Indication: CARDIAC DISORDER
     Dosage: ONE TABLET ONCE DAILY PO
     Route: 048
     Dates: start: 20080121, end: 20080212

REACTIONS (2)
  - PHARMACEUTICAL PRODUCT COMPLAINT [None]
  - SUDDEN DEATH [None]
